FAERS Safety Report 4765184-4 (Version None)
Quarter: 2005Q3

REPORT INFORMATION
  Report Type: 
  Country: None (occurrence: None)
  Receive Date: 20050906
  Receipt Date: 20050822
  Transmission Date: 20060218
  Serious: Yes (Other)
  Sender: FDA-Public Use
  Company Number: USA0508106108

PATIENT
  Sex: Female

DRUGS (1)
  1. EVISTA [Suspect]
     Dates: start: 20030101

REACTIONS (1)
  - BREAST CANCER FEMALE [None]
